FAERS Safety Report 6023707-1 (Version None)
Quarter: 2008Q4

REPORT INFORMATION
  Report Type: 
  Country: None (occurrence: None)
  Receive Date: 20081222
  Receipt Date: 20081014
  Transmission Date: 20090506
  Serious: No
  Sender: FDA-Public Use
  Company Number: ALL1-2008-02978

PATIENT
  Sex: Female

DRUGS (1)
  1. VYVANSE [Suspect]
     Dosage: 1X/DAY:QD, ORAL
     Route: 048
     Dates: start: 20080101, end: 20080801

REACTIONS (1)
  - WEIGHT DECREASED [None]
